FAERS Safety Report 4367934-8 (Version None)
Quarter: 2004Q2

REPORT INFORMATION
  Report Type: 
  Country: None (occurrence: None)
  Receive Date: 20040601
  Receipt Date: 20040520
  Transmission Date: 20050107
  Serious: Yes (Hospitalization)
  Sender: FDA-Public Use
  Company Number: 2004030906

PATIENT
  Age: 40 Year
  Sex: Male
  Weight: 107.0489 kg

DRUGS (2)
  1. MINOXIDIL [Suspect]
     Indication: ALOPECIA
     Dosage: 1 G BID, TOPICAL
     Route: 061
     Dates: start: 20040304
  2. PAROXETINE HCL [Concomitant]

REACTIONS (1)
  - RENAL FAILURE ACUTE [None]
